FAERS Safety Report 9130981 (Version 1)
Quarter: 2013Q1

REPORT INFORMATION
  Report Type: Spontaneous
  Country: US (occurrence: US)
  Receive Date: 20130301
  Receipt Date: 20130301
  Transmission Date: 20140127
  Serious: Yes (Hospitalization)
  Sender: FDA-Public Use
  Company Number: US-PFIZER INC-2013072720

PATIENT
  Sex: Male

DRUGS (1)
  1. NEURONTIN [Suspect]
     Indication: NEURALGIA
     Dosage: UNK

REACTIONS (5)
  - Staphylococcal infection [Unknown]
  - Drug ineffective [Unknown]
  - Burning sensation [Unknown]
  - Nerve compression [Unknown]
  - Insomnia [Unknown]
